FAERS Safety Report 19612956 (Version 1)
Quarter: 2021Q3

REPORT INFORMATION
  Report Type: Spontaneous
  Country: US (occurrence: US)
  Receive Date: 20210727
  Receipt Date: 20210727
  Transmission Date: 20211014
  Serious: No
  Sender: FDA-Public Use
  Company Number: US-ELI_LILLY_AND_COMPANY-US202107010237

PATIENT
  Sex: Female

DRUGS (2)
  1. TRULICITY [Suspect]
     Active Substance: DULAGLUTIDE
     Indication: PRODUCT USED FOR UNKNOWN INDICATION
     Dosage: 0.75 MG, WEEKLY (1/W)
     Route: 065
  2. TRULICITY [Suspect]
     Active Substance: DULAGLUTIDE
     Dosage: 0.75 MG, WEEKLY (1/W)
     Route: 065

REACTIONS (7)
  - Injection site swelling [Recovered/Resolved]
  - Accidental underdose [Unknown]
  - Injection site pain [Unknown]
  - Injection site hypoaesthesia [Recovered/Resolved]
  - Product administered at inappropriate site [Unknown]
  - Injection site bruising [Unknown]
  - Injection site haemorrhage [Unknown]
